FAERS Safety Report 8909763 (Version 1)
Quarter: 2012Q4

REPORT INFORMATION
  Report Type: 
  Country: BR (occurrence: BR)
  Receive Date: 20121115
  Receipt Date: 20121115
  Transmission Date: 20130627
  Serious: Yes (Other)
  Sender: FDA-Public Use
  Company Number: BR-PFIZER INC-2012284984

PATIENT
  Age: 41 Year
  Sex: Female
  Weight: 107 kg

DRUGS (10)
  1. LYRICA [Suspect]
     Indication: HERNIATED DISC
     Dosage: 2 capsules of strength 75 mg daily
     Route: 048
     Dates: start: 20120913
  2. LYRICA [Suspect]
     Indication: ANXIETY
  3. CHLOROQUINE [Concomitant]
     Indication: RHEUMATOID ARTHRITIS
     Dosage: UNK
     Dates: start: 1997
  4. CHLOROQUINE [Concomitant]
     Indication: ARTHRITIS
     Dosage: 1 tablet of 400mg, 1x/day
  5. FLUXENE [Concomitant]
     Indication: ANXIOLYTIC THERAPY
     Dosage: UNK
     Dates: start: 20120913
  6. PURAN T4 [Concomitant]
     Indication: HYPOTHYROIDISM
     Dosage: 1 tablet of 175 mg, 1x/day
  7. OMEPRAZOLE [Concomitant]
     Dosage: UNK
  8. VITAMIN B12 [Concomitant]
     Dosage: UNK
  9. MATERNA [Concomitant]
     Indication: MULTI-VITAMIN MAINTENANCE
     Dosage: UNK
  10. FLUOXETINE [Concomitant]
     Indication: WEIGHT LOSS
     Dosage: 2 tablets of 20mg
     Dates: start: 201209

REACTIONS (8)
  - Hypertensive crisis [Unknown]
  - Anxiety [Unknown]
  - Eructation [Not Recovered/Not Resolved]
  - Euphoric mood [Not Recovered/Not Resolved]
  - Fatigue [Not Recovered/Not Resolved]
  - Insomnia [Not Recovered/Not Resolved]
  - Dizziness [Not Recovered/Not Resolved]
  - Off label use [Not Recovered/Not Resolved]
